FAERS Safety Report 8113554-9 (Version None)
Quarter: 2012Q1

REPORT INFORMATION
  Report Type: 
  Country: None (occurrence: None)
  Receive Date: 20120131
  Receipt Date: 20110818
  Transmission Date: 20120608
  Serious: Yes (Hospitalization)
  Sender: FDA-Public Use
  Company Number: B0740840A

PATIENT
  Age: 45 Year
  Sex: Female
  Weight: 54.8852 kg

DRUGS (2)
  1. RANITIDINE HYDROCHLORIDE [Suspect]
     Indication: GASTRITIS
     Dosage: SINGLE DOSE / INTRAVENOUS
     Route: 042
     Dates: start: 20110812
  2. DIMENHYDRINATE [Concomitant]

REACTIONS (3)
  - PRODUCT QUALITY ISSUE [None]
  - CHILLS [None]
  - VOMITING [None]
